FAERS Safety Report 19690740 (Version 11)
Quarter: 2022Q4

REPORT INFORMATION
  Report Type: Spontaneous
  Country: CH (occurrence: CH)
  Receive Date: 20210812
  Receipt Date: 20221104
  Transmission Date: 20230112
  Serious: Yes (Hospitalization, Other)
  Sender: FDA-Public Use
  Company Number: None

PATIENT
  Age: 69 Year
  Sex: Female

DRUGS (33)
  1. LORAZEPAM [Interacting]
     Active Substance: LORAZEPAM
     Dosage: 0.5 MILLIGRAM, 3/DAY
     Route: 048
     Dates: start: 20210602, end: 20210609
  2. LORAZEPAM [Interacting]
     Active Substance: LORAZEPAM
     Dosage: 0.5 MILLIGRAM, 2/DAY
     Route: 048
     Dates: start: 20210609, end: 20210611
  3. LORAZEPAM [Interacting]
     Active Substance: LORAZEPAM
     Dosage: 0.5 MILLIGRAM, 1/DAY
     Route: 048
     Dates: start: 20210611, end: 20210623
  4. LORAZEPAM [Interacting]
     Active Substance: LORAZEPAM
     Dosage: 0.5 MG, AS NEEDED
     Route: 048
     Dates: start: 20210609, end: 20210629
  5. LORAZEPAM [Interacting]
     Active Substance: LORAZEPAM
     Dosage: 0.5 MILLIGRAM, 1/DAY
     Route: 048
     Dates: start: 20210609, end: 20210624
  6. DIFLUCAN [Interacting]
     Active Substance: FLUCONAZOLE
     Dosage: 400 MILLIGRAM, 1/DAY
     Route: 048
     Dates: start: 20210618, end: 20210623
  7. PREGABALIN [Interacting]
     Active Substance: PREGABALIN
     Dosage: 50 MILLIGRAM, 3/DAY
     Route: 048
     Dates: end: 20210623
  8. PREGABALIN [Interacting]
     Active Substance: PREGABALIN
     Dosage: 50 MG EVERY 3 DAYS
     Route: 048
     Dates: start: 20210623
  9. PREGABALIN [Interacting]
     Active Substance: PREGABALIN
     Dosage: 50 MG, ALTERNATE DAY (50 MILLIGRAM, EVERY 2 DAYS
     Dates: start: 20210623, end: 20210627
  10. PREGABALIN [Interacting]
     Active Substance: PREGABALIN
     Dosage: 50 MILLIGRAM, 2/DAY
     Route: 065
     Dates: start: 20210623, end: 20210624
  11. TIZANIDINE [Interacting]
     Active Substance: TIZANIDINE
     Dosage: 2 MG, 3X/DAY (2 MILLIGRAM, 3/DAY)
     Route: 048
     Dates: start: 20210604, end: 20210623
  12. ZOLPIDEM [Interacting]
     Active Substance: ZOLPIDEM TARTRATE
     Dosage: 10 MG, 1X/DAY (10 MILLIGRAM, 1/DAY)
     Route: 048
     Dates: end: 20210611
  13. CYMBALTA [Interacting]
     Active Substance: DULOXETINE HYDROCHLORIDE
     Dosage: 30 MILLIGRAM, 1/DAY
     Route: 048
     Dates: start: 20210602, end: 20210614
  14. CYMBALTA [Interacting]
     Active Substance: DULOXETINE HYDROCHLORIDE
     Dosage: 60 MILLIGRAM, 1/DAY
     Route: 048
     Dates: start: 20210614, end: 20210618
  15. CYMBALTA [Interacting]
     Active Substance: DULOXETINE HYDROCHLORIDE
     Dosage: 90 MILLIGRAM, 1/DAY
     Route: 048
     Dates: start: 20210618, end: 20210624
  16. CYMBALTA [Interacting]
     Active Substance: DULOXETINE HYDROCHLORIDE
     Dosage: 90 MG, 1X/DAY
     Route: 048
     Dates: start: 20210618, end: 20210624
  17. FLURAZEPAM HYDROCHLORIDE [Interacting]
     Active Substance: FLURAZEPAM HYDROCHLORIDE
     Dosage: 30 MILLIGRAM, 1/DAY
     Route: 048
     Dates: start: 20210611, end: 20210624
  18. PALEXIA [Interacting]
     Active Substance: TAPENTADOL HYDROCHLORIDE
     Dosage: 50 MG, 4X/DAY (50 MILLIGRAM, 4/DAY)
     Route: 048
     Dates: start: 20210604, end: 20210618
  19. PALEXIA [Interacting]
     Active Substance: TAPENTADOL HYDROCHLORIDE
     Dosage: 50 MILLIGRAM, AS NEEDED
     Route: 048
     Dates: start: 20210604, end: 20210624
  20. ACETAMINOPHEN [Concomitant]
     Active Substance: ACETAMINOPHEN
     Dosage: UNK
     Route: 065
     Dates: start: 20210601
  21. THIAMINE HYDROCHLORIDE [Concomitant]
     Active Substance: THIAMINE HYDROCHLORIDE
     Dosage: UNK
     Route: 065
     Dates: start: 20210626, end: 20210630
  22. ENOXAPARIN SODIUM [Concomitant]
     Active Substance: ENOXAPARIN SODIUM
     Dosage: UNK
     Route: 065
     Dates: start: 20210626
  23. FOLIC ACID [Concomitant]
     Active Substance: FOLIC ACID
     Dosage: UNK
     Route: 065
     Dates: start: 20210626
  24. NEXIUM [Concomitant]
     Active Substance: ESOMEPRAZOLE MAGNESIUM
     Dosage: UNK
     Route: 065
  25. PERINDOPRIL [Concomitant]
     Active Substance: PERINDOPRIL
     Dosage: UNK
     Route: 065
  26. SODIUM PICOSULFATE [Concomitant]
     Active Substance: SODIUM PICOSULFATE
     Dosage: UNK
     Route: 065
     Dates: start: 20210618
  27. MOVICOL [Concomitant]
     Active Substance: POLYETHYLENE GLYCOL 3350\POTASSIUM CHLORIDE\SODIUM BICARBONATE\SODIUM CHLORIDE
     Dosage: UNK
     Route: 065
     Dates: start: 20210618
  28. MORPHINE [Concomitant]
     Active Substance: MORPHINE
     Dosage: UNK UNK, AS NEEDED
     Route: 065
     Dates: start: 20210626
  29. FREKA-CLYSS [Concomitant]
     Dosage: UNK, AS NEEDED
     Route: 065
     Dates: start: 20210618
  30. PREGABALIN [Concomitant]
     Active Substance: PREGABALIN
     Dosage: UNK
     Route: 065
     Dates: end: 20210627
  31. NYSTATIN [Concomitant]
     Active Substance: NYSTATIN
     Dosage: UNK
     Route: 065
     Dates: start: 20210618, end: 20210628
  32. MIRABEGRON [Concomitant]
     Active Substance: MIRABEGRON
     Dosage: UNK
     Route: 065
     Dates: end: 20210626
  33. TROSPIUM [Concomitant]
     Active Substance: TROSPIUM
     Dosage: UNK
     Route: 065
     Dates: end: 20210626

REACTIONS (5)
  - Confusional state [Recovered/Resolved]
  - Sedation [Recovered/Resolved]
  - Drug interaction [Recovered/Resolved]
  - Urinary retention [Recovered/Resolved]
  - Confusional state [Not Recovered/Not Resolved]

NARRATIVE: CASE EVENT DATE: 20210615
